FAERS Safety Report 5017717-0 (Version None)
Quarter: 2006Q2

REPORT INFORMATION
  Report Type: 
  Country: None (occurrence: None)
  Receive Date: 20060605
  Receipt Date: 20060530
  Transmission Date: 20061013
  Serious: Yes (Other)
  Sender: FDA-Public Use
  Company Number: PHNU2006DE02144

PATIENT
  Sex: Male

DRUGS (1)
  1. TEGRETOL [Suspect]
     Indication: EPILEPSY
     Dosage: 1200 MG/DAY
     Route: 048
     Dates: start: 19940101, end: 20000101

REACTIONS (5)
  - CONDITION AGGRAVATED [None]
  - LEUKOPENIA [None]
  - LYMPHOPENIA [None]
  - POLYNEUROPATHY [None]
  - TINNITUS [None]
